FAERS Safety Report 8530163-8 (Version None)
Quarter: 2012Q3

REPORT INFORMATION
  Report Type: 
  Country: None (occurrence: None)
  Receive Date: 20120723
  Receipt Date: 20120717
  Transmission Date: 20120928
  Serious: Yes (Hospitalization)
  Sender: FDA-Public Use
  Company Number: FR-PFIZER INC-2012171623

PATIENT
  Age: 32 Year
  Sex: Female

DRUGS (6)
  1. MIFEGYNE [Concomitant]
     Dosage: 600 MG, 1X/DAY
     Route: 048
     Dates: start: 20120619, end: 20120620
  2. NIMBEX [Concomitant]
     Dosage: UNK
     Dates: start: 20120621
  3. CYTOTEC [Suspect]
     Indication: ABORTION INDUCED
     Dosage: 400 UG, SINGLE
     Route: 048
     Dates: start: 20120621
  4. SUFENTANIL [Concomitant]
     Dosage: UNK
     Dates: start: 20120621
  5. ATARAX [Concomitant]
     Indication: ANXIETY
     Dosage: 25 MG
  6. LIDOCAINE [Concomitant]
     Dosage: UNK
     Dates: start: 20120621

REACTIONS (6)
  - UTERINE HYPERTONUS [None]
  - SINUS TACHYCARDIA [None]
  - ABDOMINAL PAIN [None]
  - OFF LABEL USE [None]
  - PYREXIA [None]
  - HYPERTENSION [None]
